FAERS Safety Report 9483471 (Version 1)
Quarter: 2013Q3

REPORT INFORMATION
  Report Type: Spontaneous
  Country: CA (occurrence: CA)
  Receive Date: 20130828
  Receipt Date: 20130828
  Transmission Date: 20140515
  Serious: Yes (Hospitalization)
  Sender: FDA-Public Use
  Company Number: CA-AMGEN-KDL270312

PATIENT
  Age: 56 Year
  Sex: Female
  Weight: 72.6 kg

DRUGS (4)
  1. ENBREL [Suspect]
     Indication: RHEUMATOID ARTHRITIS
     Dosage: UNK UNK, 2 TIMES/WK
     Route: 058
     Dates: start: 20050910, end: 20070701
  2. METHOTREXATE [Concomitant]
     Dosage: UNK UNK, UNK
     Route: 048
  3. HYDROXYCHLOROQUINE SULFATE [Concomitant]
  4. PREDNISONE [Concomitant]
     Dosage: 5 MG, QD

REACTIONS (15)
  - Renal failure [Unknown]
  - Endocarditis [Unknown]
  - Respiratory arrest [Unknown]
  - Injury [Unknown]
  - Staphylococcal infection [Unknown]
  - Arthritis bacterial [Unknown]
  - Hallucination [Unknown]
  - Cervical vertebral fracture [Unknown]
  - Lumbar vertebral fracture [Unknown]
  - Injury [Unknown]
  - Haemorrhage [Unknown]
  - Pyrexia [Unknown]
  - Laceration [Recovered/Resolved]
  - Local swelling [Recovered/Resolved]
  - Pain [Recovering/Resolving]
